FAERS Safety Report 11724572 (Version 3)
Quarter: 2015Q4

REPORT INFORMATION
  Report Type: Spontaneous
  Country: US (occurrence: US)
  Receive Date: 20151111
  Receipt Date: 20151119
  Transmission Date: 20160304
  Serious: No
  Sender: FDA-Public Use
  Company Number: US-UCBSA-2014005478

PATIENT
  Sex: Male

DRUGS (26)
  1. DILANTIN [Concomitant]
     Active Substance: PHENYTOIN
     Dosage: UNK
  2. VIMPAT [Suspect]
     Active Substance: LACOSAMIDE
     Dosage: 100 MG 2 TABLETS IN THE MORNING AND 3 TABLETS AT NIGHT
  3. PHENOBARBITAL. [Concomitant]
     Active Substance: PHENOBARBITAL
  4. TOPAMAX [Concomitant]
     Active Substance: TOPIRAMATE
  5. GABITRIL [Concomitant]
     Active Substance: TIAGABINE HYDROCHLORIDE
  6. ZONISAMIDE. [Concomitant]
     Active Substance: ZONISAMIDE
  7. PRIMIDONE. [Concomitant]
     Active Substance: PRIMIDONE
  8. LAMICTAL [Concomitant]
     Active Substance: LAMOTRIGINE
  9. PREGABALIN. [Concomitant]
     Active Substance: PREGABALIN
  10. VIMPAT [Suspect]
     Active Substance: LACOSAMIDE
     Indication: SEIZURE
     Dosage: UNK
  11. DEPAKENE [Concomitant]
     Active Substance: VALPROIC ACID
  12. VALIUM [Concomitant]
     Active Substance: DIAZEPAM
  13. CARBAMAZEPINE. [Concomitant]
     Active Substance: CARBAMAZEPINE
  14. VALPROIC ACID. [Concomitant]
     Active Substance: VALPROIC ACID
  15. KEPPRA [Suspect]
     Active Substance: LEVETIRACETAM
     Indication: SEIZURE
  16. ZONEGRAN [Concomitant]
     Active Substance: ZONISAMIDE
     Dosage: 100 MG, 4 CAPSULES DAILY
  17. NEURONTIN [Concomitant]
     Active Substance: GABAPENTIN
     Dosage: 300 MG, 3 CAPSULES DAILY
  18. MYSOLINE [Concomitant]
     Active Substance: PRIMIDONE
  19. TEGRETOL [Concomitant]
     Active Substance: CARBAMAZEPINE
  20. DEPAKOTE [Concomitant]
     Active Substance: DIVALPROEX SODIUM
  21. TOPIRAMATE. [Concomitant]
     Active Substance: TOPIRAMATE
  22. ZONEGRAN [Concomitant]
     Active Substance: ZONISAMIDE
     Dosage: UNK
  23. NEURONTIN [Concomitant]
     Active Substance: GABAPENTIN
     Dosage: UNK
  24. DILANTIN [Concomitant]
     Active Substance: PHENYTOIN
     Dosage: 100 MG, 2 CAPSULES DAILY
  25. FELBAMATE. [Concomitant]
     Active Substance: FELBAMATE
  26. LYRICA [Concomitant]
     Active Substance: PREGABALIN

REACTIONS (3)
  - Seizure [Not Recovered/Not Resolved]
  - Overdose [Unknown]
  - Off label use [Unknown]
